FAERS Safety Report 16271911 (Version 1)
Quarter: 2019Q2

REPORT INFORMATION
  Report Type: Report from Study
  Country: US (occurrence: US)
  Receive Date: 20190503
  Receipt Date: 20190503
  Transmission Date: 20190711
  Serious: Yes (Other)
  Sender: FDA-Public Use
  Company Number: US-SA-2019SA119593

PATIENT
  Sex: Male

DRUGS (1)
  1. INSULIN GLULISINE [Suspect]
     Active Substance: INSULIN GLULISINE
     Route: 051

REACTIONS (1)
  - Insulin resistant diabetes [Unknown]
